FAERS Safety Report 20160589 (Version 1)
Quarter: 2021Q4

REPORT INFORMATION
  Report Type: Report from Study
  Country: MX (occurrence: MX)
  Receive Date: 20211208
  Receipt Date: 20211208
  Transmission Date: 20220303
  Serious: Yes (Life-Threatening, Hospitalization)
  Sender: FDA-Public Use
  Company Number: MX-ROCHE-2934129

PATIENT
  Age: 44 Year
  Sex: Female

DRUGS (1)
  1. MIRCERA [Suspect]
     Active Substance: METHOXY POLYETHYLENE GLYCOL-EPOETIN BETA
     Indication: Nephrogenic anaemia
     Route: 058
     Dates: start: 20201001, end: 20210919

REACTIONS (8)
  - Kidney infection [Recovered/Resolved]
  - Diabetic foot infection [Recovered/Resolved]
  - Blood glucose abnormal [Recovered/Resolved]
  - Anaemia [Recovered/Resolved]
  - Localised infection [Recovered/Resolved]
  - Limb injury [Recovered/Resolved]
  - Renal injury [Recovered/Resolved]
  - Pyrexia [Recovered/Resolved]

NARRATIVE: CASE EVENT DATE: 20210101
